FAERS Safety Report 5001840-0 (Version None)
Quarter: 2006Q2

REPORT INFORMATION
  Report Type: 
  Country: None (occurrence: None)
  Receive Date: 20060515
  Receipt Date: 20060321
  Transmission Date: 20061013
  Serious: Yes (Other)
  Sender: FDA-Public Use
  Company Number: GB-GLAXOSMITHKLINE-B0416546A

PATIENT
  Age: 48 Year
  Sex: Male
  Weight: 105 kg

DRUGS (3)
  1. FLIXOTIDE [Suspect]
     Indication: EYE SWELLING
     Dosage: 125MCG TWICE PER DAY
     Route: 055
     Dates: start: 20010430
  2. BECOTIDE [Suspect]
     Dosage: 800MCG PER DAY
     Route: 055
     Dates: start: 20060110, end: 20060321
  3. SALBUTAMOL [Concomitant]
     Dosage: 100MCG PER DAY
     Route: 055

REACTIONS (4)
  - EYE SWELLING [None]
  - HYPERSENSITIVITY [None]
  - SWELLING FACE [None]
  - URTICARIA [None]
